FAERS Safety Report 10380921 (Version 1)
Quarter: 2014Q3

REPORT INFORMATION
  Report Type: Spontaneous
  Country: IE (occurrence: IE)
  Receive Date: 20140813
  Receipt Date: 20140813
  Transmission Date: 20150326
  Serious: Yes (Death, Hospitalization, Other)
  Sender: FDA-Public Use
  Company Number: IE-JNJFOC-20140803530

PATIENT

DRUGS (16)
  1. ANTIPSYCHOTIC [Suspect]
     Active Substance: UNSPECIFIED INGREDIENT
     Indication: POISONING DELIBERATE
  2. BARBITURATE [Suspect]
     Active Substance: UNSPECIFIED INGREDIENT
     Indication: POISONING DELIBERATE
     Route: 065
  3. CANNABIS [Suspect]
     Active Substance: CANNABIS SATIVA SUBSP. INDICA TOP
     Indication: POISONING DELIBERATE
     Route: 065
  4. PARACETAMOL [Suspect]
     Active Substance: ACETAMINOPHEN
     Route: 065
  5. SSRI (SELECTIVE SEROTONIN REUPTAKE INHIBITOR ) [Suspect]
     Active Substance: UNSPECIFIED INGREDIENT
     Indication: POISONING DELIBERATE
  6. ANTIEPILEPTICS [Suspect]
     Active Substance: UNSPECIFIED INGREDIENT
     Indication: POISONING DELIBERATE
  7. BENZODIAZEPINE NOS [Suspect]
     Active Substance: BENZODIAZEPINE
     Indication: POISONING DELIBERATE
  8. ALCOHOL. [Suspect]
     Active Substance: ALCOHOL
     Indication: PRODUCT USED FOR UNKNOWN INDICATION
     Route: 065
  9. OPIOIDS [Suspect]
     Active Substance: UNSPECIFIED INGREDIENT
     Indication: POISONING DELIBERATE
  10. TRICYCLIC ANTI-DEPRESSANT [Suspect]
     Active Substance: UNSPECIFIED INGREDIENT
     Indication: POISONING DELIBERATE
  11. COCAINE [Suspect]
     Active Substance: COCAINE
     Indication: POISONING DELIBERATE
  12. ZOPICLONE [Suspect]
     Active Substance: ZOPICLONE
     Indication: POISONING DELIBERATE
     Route: 065
  13. AMPHETAMINE [Suspect]
     Active Substance: AMPHETAMINE
     Indication: POISONING DELIBERATE
     Route: 065
  14. NSAID [Suspect]
     Active Substance: UNSPECIFIED INGREDIENT
     Indication: POISONING DELIBERATE
     Route: 065
  15. METRONIDAZOLE. [Suspect]
     Active Substance: METRONIDAZOLE
     Indication: POISONING DELIBERATE
     Route: 065
  16. PARACETAMOL [Suspect]
     Active Substance: ACETAMINOPHEN
     Indication: POISONING DELIBERATE
     Route: 065

REACTIONS (3)
  - Overdose [Unknown]
  - Poisoning deliberate [Fatal]
  - Brain injury [Fatal]
